FAERS Safety Report 11922047 (Version 1)
Quarter: 2016Q1

REPORT INFORMATION
  Report Type: Other
  Country: GB (occurrence: GB)
  Receive Date: 20160115
  Receipt Date: 20160115
  Transmission Date: 20160526
  Serious: Yes (Other)
  Sender: FDA-Public Use
  Company Number: GB-MEDTRONIC-1046546

PATIENT
  Age: 41 Year
  Sex: Male

DRUGS (2)
  1. BACLOFEN. [Suspect]
     Active Substance: BACLOFEN
     Indication: MUSCLE SPASTICITY
     Route: 037
  2. BACLOFEN. [Suspect]
     Active Substance: BACLOFEN
     Route: 048

REACTIONS (14)
  - Wound dehiscence [Unknown]
  - Medical device site pain [Unknown]
  - Medical device site swelling [Unknown]
  - Medical device site warmth [Unknown]
  - Medical device site inflammation [Unknown]
  - Medical device site discomfort [Unknown]
  - Medical device site haematoma [Unknown]
  - Medical device site erosion [Unknown]
  - Implant site extravasation [Unknown]
  - Medical device site discharge [Unknown]
  - Medical device site vesicles [Unknown]
  - Medical device site erythema [Unknown]
  - Medical device site ulcer [Unknown]
  - Adverse drug reaction [Unknown]
